FAERS Safety Report 21618024 (Version 1)
Quarter: 2022Q4

REPORT INFORMATION
  Report Type: Spontaneous
  Country: FR (occurrence: FR)
  Receive Date: 20221119
  Receipt Date: 20221119
  Transmission Date: 20230112
  Serious: Yes (Other)
  Sender: FDA-Public Use
  Company Number: FR-TAKEDA-2022TUS086499

PATIENT
  Age: 0 Year
  Sex: Male

DRUGS (2)
  1. FIRAZYR [Suspect]
     Active Substance: ICATIBANT ACETATE
     Indication: Product used for unknown indication
     Dosage: UNK
     Route: 065
  2. FIRAZYR [Suspect]
     Active Substance: ICATIBANT ACETATE
     Indication: Product used for unknown indication
     Dosage: UNK
     Route: 065

REACTIONS (2)
  - Foetal heart rate abnormal [Unknown]
  - Foetal exposure during pregnancy [Unknown]

NARRATIVE: CASE EVENT DATE: 20120810
